FAERS Safety Report 6960126-5 (Version None)
Quarter: 2010Q3

REPORT INFORMATION
  Report Type: 
  Country: None (occurrence: None)
  Receive Date: 20100901
  Receipt Date: 20100831
  Transmission Date: 20110219
  Serious: Yes (Death)
  Sender: FDA-Public Use
  Company Number: HR-ABBOTT-10P-216-0666837-00

PATIENT
  Sex: Male

DRUGS (1)
  1. ZEMPLAR [Suspect]
     Indication: PRODUCT USED FOR UNKNOWN INDICATION
     Route: 042

REACTIONS (1)
  - CACHEXIA [None]
